FAERS Safety Report 10413238 (Version 5)
Quarter: 2014Q4

REPORT INFORMATION
  Report Type: Spontaneous
  Country: JP (occurrence: JP)
  Receive Date: 20140827
  Receipt Date: 20141006
  Transmission Date: 20150528
  Serious: Yes (Hospitalization)
  Sender: FDA-Public Use
  Company Number: JP-LUNDBECK-DKLU1103017

PATIENT
  Age: 3 Year
  Sex: Male

DRUGS (13)
  1. VIGABATRIN (TABLET) [Suspect]
     Active Substance: VIGABATRIN
     Indication: INFANTILE SPASMS
     Dates: start: 20130813
  2. VIGABATRIN (TABLET) [Suspect]
     Active Substance: VIGABATRIN
     Dates: start: 20140513
  3. VIGABATRIN (TABLET) [Suspect]
     Active Substance: VIGABATRIN
     Dates: start: 20140820, end: 20140821
  4. MIDAZOLAM [Concomitant]
     Active Substance: MIDAZOLAM\MIDAZOLAM HYDROCHLORIDE
     Indication: PRODUCT USED FOR UNKNOWN INDICATION
     Dates: end: 20140818
  5. VIGABATRIN (TABLET) [Suspect]
     Active Substance: VIGABATRIN
     Dates: start: 20130825
  6. VIGABATRIN (TABLET) [Suspect]
     Active Substance: VIGABATRIN
     Dates: start: 20130822
  7. VIGABATRIN (TABLET) [Suspect]
     Active Substance: VIGABATRIN
     Dates: start: 20140414
  8. DEPAKENE [Concomitant]
     Active Substance: VALPROIC ACID
     Indication: INFANTILE SPASMS
     Dates: start: 20140726, end: 20140816
  9. DEPAKENE [Concomitant]
     Active Substance: VALPROIC ACID
     Dates: start: 20140816
  10. VIGABATRIN (TABLET) [Suspect]
     Active Substance: VIGABATRIN
     Dates: start: 20130816
  11. VIGABATRIN (TABLET) [Suspect]
     Active Substance: VIGABATRIN
     Dates: start: 20130819
  12. KEPPRA [Concomitant]
     Active Substance: LEVETIRACETAM
     Indication: INFANTILE SPASMS
     Dates: start: 20140314
  13. ALL OTHER THERAPEUTIC PRODUCTS [Concomitant]
     Active Substance: UNSPECIFIED INGREDIENT
     Indication: PRODUCT USED FOR UNKNOWN INDICATION
     Dates: end: 20140819

REACTIONS (2)
  - Encephalopathy [Recovered/Resolved]
  - Central nervous system lesion [Recovered/Resolved]

NARRATIVE: CASE EVENT DATE: 20140814
